FAERS Safety Report 7009863-7 (Version None)
Quarter: 2010Q3

REPORT INFORMATION
  Report Type: 
  Country: None (occurrence: None)
  Receive Date: 20100923
  Receipt Date: 20100914
  Transmission Date: 20110219
  Serious: Yes (Other)
  Sender: FDA-Public Use
  Company Number: GB-AMGEN-QUU435189

PATIENT
  Sex: Male

DRUGS (2)
  1. ENBREL [Suspect]
     Indication: PSORIATIC ARTHROPATHY
     Route: 058
     Dates: start: 20041029, end: 20100801
  2. ACETAMINOPHEN [Concomitant]
     Indication: PAIN
     Dosage: UNKNOWN
     Route: 048

REACTIONS (1)
  - LUNG CANCER METASTATIC [None]
